FAERS Safety Report 4792575-8 (Version None)
Quarter: 2005Q4

REPORT INFORMATION
  Report Type: 
  Country: None (occurrence: None)
  Receive Date: 20051010
  Receipt Date: 20050929
  Transmission Date: 20060501
  Serious: Yes (Hospitalization, Disabling)
  Sender: FDA-Public Use
  Company Number: US-MERCK-0510USA01683

PATIENT
  Age: 56 Year
  Sex: Male
  Weight: 120 kg

DRUGS (11)
  1. VIOXX [Suspect]
     Indication: BACK PAIN
     Route: 048
     Dates: start: 19991014, end: 19991027
  2. VIOXX [Suspect]
     Route: 048
     Dates: start: 19991028, end: 20040930
  3. VIOXX [Suspect]
     Indication: BURSITIS
     Route: 048
     Dates: start: 19991014, end: 19991027
  4. VIOXX [Suspect]
     Route: 048
     Dates: start: 19991028, end: 20040930
  5. AMARYL [Concomitant]
     Route: 065
  6. GLUCOPHAGE [Concomitant]
     Route: 065
  7. LOPID [Concomitant]
     Route: 065
  8. ZOCOR [Concomitant]
     Route: 048
  9. PRINZIDE [Concomitant]
     Route: 048
  10. VICODIN [Concomitant]
     Route: 065
  11. LISINOPRIL [Concomitant]
     Route: 048

REACTIONS (22)
  - CARDIAC MURMUR [None]
  - CEREBROVASCULAR ACCIDENT [None]
  - DIABETES MELLITUS [None]
  - DIPLOPIA [None]
  - DIZZINESS [None]
  - DRUG EFFECT DECREASED [None]
  - DRUG INEFFECTIVE [None]
  - FALL [None]
  - GASTRITIS [None]
  - HAEMORRHAGE INTRACRANIAL [None]
  - HEADACHE [None]
  - HYPERCHOLESTEROLAEMIA [None]
  - HYPERLIPIDAEMIA [None]
  - HYPERTENSION [None]
  - HYPOAESTHESIA [None]
  - HYPOTHYROIDISM [None]
  - INTESTINAL POLYP [None]
  - LUMBAR RADICULOPATHY [None]
  - MUSCULOSKELETAL STIFFNESS [None]
  - PARAESTHESIA [None]
  - REFLUX OESOPHAGITIS [None]
  - VITH NERVE PARALYSIS [None]
